FAERS Safety Report 12497942 (Version 1)
Quarter: 2016Q2

REPORT INFORMATION
  Report Type: Other
  Country: NL (occurrence: NL)
  Receive Date: 20160626
  Receipt Date: 20160626
  Transmission Date: 20160815
  Serious: Yes (Hospitalization)
  Sender: FDA-Public Use
  Company Number: NL-DEXPHARM-20161375

PATIENT
  Age: 51 Year
  Sex: Female

DRUGS (4)
  1. DIAZEPAM. [Concomitant]
     Active Substance: DIAZEPAM
  2. CHLORHEXIDINE 0.5% [Suspect]
     Active Substance: CHLORHEXIDINE
     Dosage: APP 100 ML OF CHLORHEXIDINE 0.5% IN ETHANOL 70% SKIN DISINFECTANT
  3. METARELAX [Concomitant]
  4. ETHANOL 70% [Concomitant]
     Dosage: APP 100 ML OF CHLORHEXIDINE 0.5% IN ETHANOL 70% SKIN DISINFECTANT

REACTIONS (5)
  - Alanine aminotransferase increased [None]
  - Methaemoglobinaemia [Recovered/Resolved]
  - Aspartate aminotransferase increased [None]
  - Nausea [None]
  - Sinus tachycardia [None]
